FAERS Safety Report 4396724-5 (Version None)
Quarter: 2004Q3

REPORT INFORMATION
  Report Type: 
  Country: None (occurrence: None)
  Receive Date: 20040713
  Receipt Date: 20040713
  Transmission Date: 20050211
  Serious: Yes (Hospitalization)
  Sender: FDA-Public Use
  Company Number: None

PATIENT
  Age: 67 Year
  Sex: Male
  Weight: 69.4 kg

DRUGS (1)
  1. PENICILLIN VK [Suspect]
     Indication: TOOTH ABSCESS
     Dosage: 2G, 500MGQ6H, ORAL
     Route: 048
     Dates: start: 20040603, end: 20040604

REACTIONS (2)
  - ANGIONEUROTIC OEDEMA [None]
  - RASH [None]
